FAERS Safety Report 19264494 (Version 3)
Quarter: 2021Q3

REPORT INFORMATION
  Report Type: Spontaneous
  Country: CA (occurrence: CA)
  Receive Date: 20210517
  Receipt Date: 20210707
  Transmission Date: 20211014
  Serious: Yes (Hospitalization, Other)
  Sender: FDA-Public Use
  Company Number: CA-TAKEDA-2021TUS030877

PATIENT
  Age: 44 Year
  Sex: Male
  Weight: 84 kg

DRUGS (5)
  1. TRINTELLIX [Suspect]
     Active Substance: VORTIOXETINE HYDROBROMIDE
     Indication: SEIZURE
     Dosage: 10 MILLIGRAM, QD
     Route: 048
     Dates: start: 20201208, end: 20210506
  2. LEVOTHYROXINE. [Concomitant]
     Active Substance: LEVOTHYROXINE
     Indication: MAJOR DEPRESSION
     Dosage: 0.088 MILLIGRAM
     Route: 065
     Dates: start: 201906
  3. PANTOPRAZOLE [Concomitant]
     Active Substance: PANTOPRAZOLE
     Indication: MAJOR DEPRESSION
     Dosage: 40 MILLIGRAM, QD
     Route: 048
     Dates: start: 2019
  4. CLONAZEPAM. [Concomitant]
     Active Substance: CLONAZEPAM
     Indication: MAJOR DEPRESSION
     Dosage: 0.5 MILLIGRAM
     Route: 048
  5. CETIRIZINE [Concomitant]
     Active Substance: CETIRIZINE HYDROCHLORIDE
     Indication: MAJOR DEPRESSION
     Dosage: 10 MILLIGRAM, QD
     Route: 048
     Dates: start: 20200610

REACTIONS (7)
  - Head titubation [Unknown]
  - Product use in unapproved indication [Unknown]
  - Tonic clonic movements [Recovered/Resolved]
  - Crying [Recovered/Resolved]
  - Cyanosis [Recovered/Resolved]
  - Postictal state [Recovered/Resolved]
  - Confusional state [Recovered/Resolved]

NARRATIVE: CASE EVENT DATE: 20210429
